APPROVED DRUG PRODUCT: AEROSPORIN
Active Ingredient: POLYMYXIN B SULFATE
Strength: EQ 500,000 UNITS BASE/VIAL
Dosage Form/Route: INJECTABLE;INJECTION
Application: A062036 | Product #001
Applicant: GLAXOSMITHKLINE
Approved: Approved Prior to Jan 1, 1982 | RLD: No | RS: No | Type: DISCN